FAERS Safety Report 22071170 (Version 1)
Quarter: 2023Q1

REPORT INFORMATION
  Report Type: Spontaneous
  Country: JP (occurrence: JP)
  Receive Date: 20230307
  Receipt Date: 20230307
  Transmission Date: 20230418
  Serious: Yes (Hospitalization, Other)
  Sender: FDA-Public Use
  Company Number: JP-PFIZER INC-PV202300038398

PATIENT
  Age: 42 Year
  Sex: Female

DRUGS (4)
  1. METHYLPREDNISOLONE [Suspect]
     Active Substance: METHYLPREDNISOLONE
     Dosage: UNKNOWN
  2. TACROLIMUS [Suspect]
     Active Substance: TACROLIMUS
     Dosage: UNKNOWN
  3. MYCOPHENOLATE MOFETIL [Suspect]
     Active Substance: MYCOPHENOLATE MOFETIL
     Dosage: UNKNOWN
  4. BASILIXIMAB [Suspect]
     Active Substance: BASILIXIMAB
     Dosage: UNKNOWN

REACTIONS (1)
  - Cervix carcinoma stage I [Unknown]
